FAERS Safety Report 9586574 (Version 2)
Quarter: 2013Q4

REPORT INFORMATION
  Report Type: Report from Study
  Country: FR (occurrence: FR)
  Receive Date: 20131003
  Receipt Date: 20131008
  Transmission Date: 20140711
  Serious: Yes (Hospitalization)
  Sender: FDA-Public Use
  Company Number: FR-ABBVIE-13P-056-1152721-00

PATIENT
  Age: 27 Year
  Sex: Male

DRUGS (2)
  1. HUMIRA [Suspect]
     Indication: CROHN^S DISEASE
     Route: 058
     Dates: end: 20091021
  2. CIMZIA [Concomitant]
     Indication: CROHN^S DISEASE
     Dates: start: 20100112, end: 20100607

REACTIONS (2)
  - Anal fistula [Not Recovered/Not Resolved]
  - Anal abscess [Not Recovered/Not Resolved]
